FAERS Safety Report 5493916-9 (Version None)
Quarter: 2007Q4

REPORT INFORMATION
  Report Type: 
  Country: None (occurrence: None)
  Receive Date: 20071023
  Receipt Date: 20071018
  Transmission Date: 20080405
  Serious: Yes (Other)
  Sender: FDA-Public Use
  Company Number: GB-MERCK-0710GBR00092

PATIENT
  Age: 62 Year
  Sex: Male
  Weight: 62 kg

DRUGS (5)
  1. ZOCOR [Suspect]
     Indication: HYPERLIPIDAEMIA
     Route: 048
     Dates: start: 20061121, end: 20070625
  2. LISINOPRIL [Concomitant]
     Indication: TYPE 2 DIABETES MELLITUS
     Route: 048
     Dates: start: 20060601
  3. METFORMIN [Concomitant]
     Indication: TYPE 2 DIABETES MELLITUS
     Route: 048
     Dates: start: 20060404
  4. ALBUTEROL [Concomitant]
     Route: 065
     Dates: start: 20061115
  5. BUDESONIDE AND FORMOTEROL FUMARATE [Concomitant]
     Indication: ASTHMA
     Dates: start: 20061004

REACTIONS (2)
  - HAEMOGLOBIN DECREASED [None]
  - PLATELET COUNT DECREASED [None]
